FAERS Safety Report 4591064-3 (Version None)
Quarter: 2005Q1

REPORT INFORMATION
  Report Type: 
  Country: None (occurrence: None)
  Receive Date: 20050222
  Receipt Date: 20050222
  Transmission Date: 20050727
  Serious: Yes (Other)
  Sender: FDA-Public Use
  Company Number: None

PATIENT
  Age: 25 Year
  Sex: Male
  Weight: 64.4108 kg

DRUGS (1)
  1. STRATTERA [Suspect]
     Indication: ATTENTION DEFICIT/HYPERACTIVITY DISORDER
     Dosage: 80 MG DAY ORAL
     Route: 048
     Dates: start: 20040722, end: 20050218

REACTIONS (5)
  - ABNORMAL BEHAVIOUR [None]
  - DRUG ABUSER [None]
  - HYPERTENSION [None]
  - TACHYCARDIA [None]
  - TREATMENT NONCOMPLIANCE [None]
